FAERS Safety Report 4609611-1 (Version None)
Quarter: 2005Q1

REPORT INFORMATION
  Report Type: 
  Country: None (occurrence: None)
  Receive Date: 20050316
  Receipt Date: 20050303
  Transmission Date: 20050727
  Serious: Yes (Hospitalization)
  Sender: FDA-Public Use
  Company Number: 200511745US

PATIENT
  Sex: Female

DRUGS (3)
  1. TAXOTERE [Suspect]
     Indication: BREAST CANCER STAGE III
     Route: 042
     Dates: start: 20041228, end: 20050207
  2. RADIOTHERAPY [Suspect]
     Indication: BREAST CANCER STAGE III
     Dates: start: 20041228, end: 20050207
  3. INSULIN NOS [Concomitant]

REACTIONS (2)
  - CATHETER RELATED COMPLICATION [None]
  - WOUND DEHISCENCE [None]
